FAERS Safety Report 5318039-0 (Version None)
Quarter: 2007Q1

REPORT INFORMATION
  Report Type: 
  Country: None (occurrence: None)
  Receive Date: 20070202
  Receipt Date: 20060607
  Transmission Date: 20070707
  Serious: Yes (Hospitalization)
  Sender: FDA-Public Use
  Company Number: 451236

PATIENT
  Sex: Male

DRUGS (3)
  1. INVIRASE [Suspect]
     Indication: HIV INFECTION
     Dosage: 5 DOSE FORM DAILY ORAL
     Route: 048
     Dates: start: 20060301, end: 20060419
  2. NORVIR [Concomitant]
  3. DIDANOSINE [Concomitant]

REACTIONS (9)
  - ARTHRALGIA [None]
  - ASTHENIA [None]
  - BACK PAIN [None]
  - CONVULSION [None]
  - HEADACHE [None]
  - HYPOAESTHESIA [None]
  - MYALGIA [None]
  - NIGHT SWEATS [None]
  - VIRAL LOAD INCREASED [None]
